FAERS Safety Report 6744813-X (Version None)
Quarter: 2010Q2

REPORT INFORMATION
  Report Type: 
  Country: None (occurrence: None)
  Receive Date: 20100527
  Receipt Date: 20100224
  Transmission Date: 20101027
  Serious: No
  Sender: FDA-Public Use
  Company Number: US-BRISTOL-MYERS SQUIBB COMPANY-14993026

PATIENT
  Age: 44 Year
  Sex: Male

DRUGS (6)
  1. ONGLYZA [Suspect]
     Indication: TYPE 2 DIABETES MELLITUS
     Dosage: TAKEN 3-4 DAYS
  2. SIMVASTATIN [Concomitant]
  3. TOPROL-XL [Concomitant]
  4. LISINOPRIL [Concomitant]
  5. ALLEGRA [Concomitant]
  6. ACTOS [Concomitant]

REACTIONS (3)
  - ARTHRALGIA [None]
  - GAIT DISTURBANCE [None]
  - IMPAIRED DRIVING ABILITY [None]
